FAERS Safety Report 22182844 (Version 1)
Quarter: 2023Q2

REPORT INFORMATION
  Report Type: Spontaneous
  Country: US (occurrence: None)
  Receive Date: 20230406
  Receipt Date: 20230406
  Transmission Date: 20230722
  Serious: Yes (Death)
  Sender: FDA-Public Use
  Company Number: None

PATIENT
  Sex: Male

DRUGS (1)
  1. HUMIRA [Suspect]
     Active Substance: ADALIMUMAB
     Indication: Colitis
     Dosage: FREQUENCY : EVERY OTHER WEEK;?
     Route: 058
     Dates: start: 20221214, end: 20230317

REACTIONS (7)
  - Cardiac disorder [None]
  - Respiratory failure [None]
  - Pulmonary embolism [None]
  - General physical health deterioration [None]
  - Rectal haemorrhage [None]
  - Fatigue [None]
  - Atrial fibrillation [None]
